FAERS Safety Report 24218095 (Version 3)
Quarter: 2024Q3

REPORT INFORMATION
  Report Type: Spontaneous
  Country: US (occurrence: US)
  Receive Date: 20240816
  Receipt Date: 20240830
  Transmission Date: 20241016
  Serious: Yes (Other)
  Sender: PAREXEL
  Company Number: US-AVEO PHARMACEUTICALS, INC.-2024-AVEO-US000575

PATIENT

DRUGS (1)
  1. FOTIVDA [Suspect]
     Active Substance: TIVOZANIB HYDROCHLORIDE
     Indication: Renal cell carcinoma
     Dosage: 1.34 MG, DAILY FOR 21 DAYS WITH 7 DAYS OFF (28-DAY CYCLE)
     Route: 048
     Dates: start: 20240715, end: 20240826

REACTIONS (8)
  - Neuropathy peripheral [Unknown]
  - Pemphigoid [Unknown]
  - Fatigue [Unknown]
  - Blood pressure increased [Unknown]
  - Dysphonia [Unknown]
  - Stomatitis [Unknown]
  - Somnolence [Unknown]
  - Dizziness postural [Not Recovered/Not Resolved]

NARRATIVE: CASE EVENT DATE: 20240101
